FAERS Safety Report 14298751 (Version 1)
Quarter: 2017Q4

REPORT INFORMATION
  Report Type: Spontaneous
  Country: US (occurrence: US)
  Receive Date: 20171218
  Receipt Date: 20171218
  Transmission Date: 20180321
  Serious: No
  Sender: FDA-Public Use
  Company Number: None

PATIENT
  Age: 67 Year
  Sex: Female
  Weight: 117.94 kg

DRUGS (10)
  1. METHYLPRED 4MG PAK PFIZ [Suspect]
     Active Substance: METHYLPREDNISOLONE
     Indication: BACK PAIN
     Dosage: DOSE AMOUNT - 2 PILLS 1 PILL 1 PILL 1 PILL?FREQUENCY - 1ST DAY 2-1-1-1-2
     Route: 048
     Dates: start: 20171106, end: 20171106
  2. LISINOPRIL. [Concomitant]
     Active Substance: LISINOPRIL
  3. PREDNISONE 50MG ROXANE [Suspect]
     Active Substance: PREDNISONE
     Dates: start: 20170612, end: 20170612
  4. CYCLOBENZAPR [Concomitant]
     Active Substance: CYCLOBENZAPRINE
  5. VITAMIN MULTI WOMAN 50 [Concomitant]
  6. DEXILANT [Concomitant]
     Active Substance: DEXLANSOPRAZOLE
  7. CX DAILY EYE PROTECTOR SPF 15 [Concomitant]
     Active Substance: TITANIUM DIOXIDE
  8. ZETIA [Concomitant]
     Active Substance: EZETIMIBE
  9. VITAMIN D [Concomitant]
     Active Substance: CHOLECALCIFEROL
  10. PROPRANOLOL ER [Concomitant]
     Active Substance: PROPRANOLOL HYDROCHLORIDE

REACTIONS (3)
  - Erythema [None]
  - Feeling hot [None]
  - Drug hypersensitivity [None]

NARRATIVE: CASE EVENT DATE: 20171106
